FAERS Safety Report 18404598 (Version 1)
Quarter: 2020Q4

REPORT INFORMATION
  Report Type: Spontaneous
  Country: IN (occurrence: IN)
  Receive Date: 20201020
  Receipt Date: 20201020
  Transmission Date: 20210114
  Serious: Yes (Life-Threatening, Disabling, Other)
  Sender: FDA-Public Use
  Company Number: None

PATIENT
  Age: 52 Year
  Sex: Male
  Weight: 64 kg

DRUGS (12)
  1. JANUMET [Concomitant]
     Active Substance: METFORMIN HYDROCHLORIDE\SITAGLIPTIN PHOSPHATE
  2. IRON [Concomitant]
     Active Substance: IRON
  3. METOLAR XR [Concomitant]
     Active Substance: METOPROLOL SUCCINATE
  4. CARDACE [Concomitant]
  5. ULTRACET NOW [Concomitant]
  6. CLONOTRIL [Concomitant]
     Active Substance: CLONAZEPAM
  7. CLOPILET [Concomitant]
  8. ATIVAN [Concomitant]
     Active Substance: LORAZEPAM
  9. REPATHA [Suspect]
     Active Substance: EVOLOCUMAB
     Indication: BLOOD CHOLESTEROL ABNORMAL
     Dosage: ?          QUANTITY:1 INJECTION(S);OTHER FREQUENCY:15 DAYS;?
     Route: 058
     Dates: start: 20190831, end: 20191015
  10. VITAMIN D3 [Concomitant]
     Active Substance: CHOLECALCIFEROL
  11. VITAMIN B12 [Concomitant]
     Active Substance: CYANOCOBALAMIN
  12. THYRONORM [Concomitant]
     Active Substance: LEVOTHYROXINE

REACTIONS (5)
  - Dizziness [None]
  - Impaired quality of life [None]
  - Connective tissue disorder [None]
  - Gait inability [None]
  - Musculoskeletal disorder [None]

NARRATIVE: CASE EVENT DATE: 20190831
